FAERS Safety Report 24256530 (Version 1)
Quarter: 2024Q3

REPORT INFORMATION
  Report Type: Spontaneous
  Country: CA (occurrence: CA)
  Receive Date: 20240828
  Receipt Date: 20240828
  Transmission Date: 20241017
  Serious: Yes (Other)
  Sender: Haleon PLC
  Company Number: CA-HALEON-2193504

PATIENT
  Age: 71 Year
  Sex: Female

DRUGS (2)
  1. FLONASE ALLERGY RELIEF [Suspect]
     Active Substance: FLUTICASONE PROPIONATE
     Indication: Product used for unknown indication
     Route: 065
  2. TRELEGY ELLIPTA [Suspect]
     Active Substance: FLUTICASONE FUROATE\UMECLIDINIUM BROMIDE\VILANTEROL TRIFENATATE
     Indication: Product used for unknown indication
     Route: 065

REACTIONS (8)
  - Asthenia [Unknown]
  - Loss of personal independence in daily activities [Unknown]
  - Increased bronchial secretion [Unknown]
  - Pulmonary congestion [Unknown]
  - Productive cough [Unknown]
  - Cough [Unknown]
  - Wheezing [Unknown]
  - Dyspnoea exertional [Unknown]
